FAERS Safety Report 4765024-3 (Version None)
Quarter: 2005Q3

REPORT INFORMATION
  Report Type: 
  Country: None (occurrence: None)
  Receive Date: 20050909
  Receipt Date: 20030630
  Transmission Date: 20060218
  Serious: Yes (Hospitalization)
  Sender: FDA-Public Use
  Company Number: FR-BRISTOL-MYERS SQUIBB COMPANY-12313599

PATIENT
  Age: 30 Year
  Sex: Male

DRUGS (4)
  1. AMPHOTERICIN B [Suspect]
  2. CEFEPIME HCL [Suspect]
  3. NETILMICIN SULFATE [Suspect]
  4. AMPHOTERICIN B [Suspect]

REACTIONS (12)
  - COMA [None]
  - CONFUSIONAL STATE [None]
  - ENTERITIS [None]
  - HYPERNATRAEMIA [None]
  - HYPOKALAEMIA [None]
  - METABOLIC ACIDOSIS [None]
  - NEPHROGENIC DIABETES INSIPIDUS [None]
  - NEPHROPATHY TOXIC [None]
  - NEUTROPENIA [None]
  - RENAL FAILURE ACUTE [None]
  - TACHYCARDIA [None]
  - TACHYPNOEA [None]
